FAERS Safety Report 7044883-8 (Version None)
Quarter: 2010Q4

REPORT INFORMATION
  Report Type: 
  Country: None (occurrence: None)
  Receive Date: 20101013
  Receipt Date: 20101013
  Transmission Date: 20110411
  Serious: Yes (Other)
  Sender: FDA-Public Use
  Company Number: None

PATIENT
  Age: 40 Year
  Sex: Male
  Weight: 83.4619 kg

DRUGS (3)
  1. FLUTICASONE PROPIONATE [Suspect]
     Indication: RHINITIS ALLERGIC
     Dosage: 50 MCG QD NASAL
     Route: 045
     Dates: start: 20091101
  2. AMOXICILLIN [Concomitant]
  3. FLONASE [Suspect]

REACTIONS (1)
  - MIGRAINE [None]
